FAERS Safety Report 16827126 (Version 1)
Quarter: 2019Q3

REPORT INFORMATION
  Report Type: Spontaneous
  Country: CN (occurrence: CN)
  Receive Date: 20190919
  Receipt Date: 20190919
  Transmission Date: 20191005
  Serious: No
  Sender: FDA-Public Use
  Company Number: CN-BEH-2019107122

PATIENT
  Age: 83 Year
  Sex: Male

DRUGS (1)
  1. ALBUMINAR-20 [Suspect]
     Active Substance: ALBUMIN HUMAN
     Indication: HYPOPROTEINAEMIA
     Dosage: 10 GRAM, SINGLE
     Route: 041
     Dates: start: 20190804, end: 20190804

REACTIONS (2)
  - Pyrexia [Recovering/Resolving]
  - Pruritus [Recovering/Resolving]

NARRATIVE: CASE EVENT DATE: 20190804
